FAERS Safety Report 25146157 (Version 1)
Quarter: 2025Q2

REPORT INFORMATION
  Report Type: Spontaneous
  Country: US (occurrence: US)
  Receive Date: 20250401
  Receipt Date: 20250401
  Transmission Date: 20250717
  Serious: No
  Sender: DUCHESNAY
  Company Number: US-DUCHESNAY-2024US000207

PATIENT
  Sex: Female

DRUGS (1)
  1. BONJESTA [Suspect]
     Active Substance: DOXYLAMINE SUCCINATE\PYRIDOXINE HYDROCHLORIDE
     Indication: Morning sickness
     Dosage: 2 DOSAGE FORM A DAY, ONE DOSAGE FORM IN THE MORNING AND ONE AT NIGHT

REACTIONS (3)
  - Impaired work ability [Unknown]
  - Drug ineffective [Unknown]
  - Nausea [Unknown]
